FAERS Safety Report 19500320 (Version 4)
Quarter: 2022Q2

REPORT INFORMATION
  Report Type: Report from Study
  Country: US (occurrence: US)
  Receive Date: 20210706
  Receipt Date: 20220620
  Transmission Date: 20220721
  Serious: No
  Sender: FDA-Public Use
  Company Number: NVSC2021US150714

PATIENT
  Sex: Female

DRUGS (2)
  1. PIQRAY [Suspect]
     Active Substance: ALPELISIB
     Indication: Product used for unknown indication
     Dosage: 150 MG, BID (TWO 150 MG TABLETS) BY MOUTH DAILY
     Route: 048
  2. PIQRAY [Suspect]
     Active Substance: ALPELISIB
     Dosage: 300 MG
     Route: 048

REACTIONS (5)
  - Skin exfoliation [Unknown]
  - Oral mucosal blistering [Unknown]
  - Blood glucose increased [Unknown]
  - Glucose tolerance impaired [Unknown]
  - Drug ineffective [Unknown]
